FAERS Safety Report 8911491 (Version 1)
Quarter: 2012Q4

REPORT INFORMATION
  Report Type: 
  Country: GB (occurrence: GB)
  Receive Date: 20121116
  Receipt Date: 20121116
  Transmission Date: 20130627
  Serious: Yes (Hospitalization)
  Sender: FDA-Public Use
  Company Number: GB-ABBOTT-12P-167-1007149-00

PATIENT
  Age: 50 Year
  Sex: Female

DRUGS (1)
  1. CLARITHROMYCIN [Suspect]
     Indication: PRODUCT USED FOR UNKNOWN INDICATION

REACTIONS (2)
  - Bone marrow failure [Recovered/Resolved]
  - Hypoglycaemia [Recovered/Resolved]
